FAERS Safety Report 6113022-X (Version None)
Quarter: 2009Q1

REPORT INFORMATION
  Report Type: 
  Country: None (occurrence: None)
  Receive Date: 20090312
  Receipt Date: 20090305
  Transmission Date: 20090719
  Serious: Yes (Death)
  Sender: FDA-Public Use
  Company Number: B0563322A

PATIENT
  Sex: Female

DRUGS (6)
  1. PAROXETINE HCL [Suspect]
     Indication: ANXIETY
     Dosage: 10MG PER DAY
     Route: 048
     Dates: start: 20060101
  2. AMOXICILLIN + CLAVULANATE POTASSIUM [Concomitant]
     Route: 048
     Dates: start: 20060205
  3. PREDNISOLONE [Concomitant]
     Indication: ASTHMA
     Route: 048
     Dates: start: 20060205
  4. PANTOPRAZOLE SODIUM [Concomitant]
     Route: 048
  5. CO-DYDRAMOL [Concomitant]
  6. QVAR 40 [Concomitant]
     Indication: ASTHMA
     Route: 055

REACTIONS (4)
  - ARRHYTHMIA [None]
  - ARTERIOSPASM CORONARY [None]
  - PANIC ATTACK [None]
  - WITHDRAWAL SYNDROME [None]
